FAERS Safety Report 8342828-1 (Version None)
Quarter: 2012Q2

REPORT INFORMATION
  Report Type: 
  Country: None (occurrence: None)
  Receive Date: 20120508
  Receipt Date: 20120501
  Transmission Date: 20120825
  Serious: Yes (Other)
  Sender: FDA-Public Use
  Company Number: US-BAYER-2012-008713

PATIENT
  Age: 66 Year
  Sex: Male

DRUGS (7)
  1. NEXAVAR [Suspect]
     Indication: HEPATIC NEOPLASM MALIGNANT
     Dosage: 400 MG, BID
     Dates: start: 20120120, end: 20120126
  2. NEXAVAR [Suspect]
     Dosage: 400 MG, BID
     Dates: start: 20120131, end: 20120308
  3. NEXAVAR [Suspect]
     Dosage: 400 MG, BID
     Dates: start: 20120101
  4. ANTIHYPERTENSIVES [Concomitant]
  5. UREA [Concomitant]
     Dosage: UNK UNK, OW
  6. UREA [Concomitant]
     Dosage: UNK UNK, QD
     Route: 061
  7. AMLACTIN [Concomitant]
     Route: 061

REACTIONS (16)
  - CANDIDIASIS [None]
  - PYREXIA [None]
  - GLOSSODYNIA [None]
  - IMPAIRED HEALING [None]
  - SKIN EXFOLIATION [None]
  - NAUSEA [None]
  - STOMATITIS [None]
  - INFLUENZA LIKE ILLNESS [None]
  - HYPERHIDROSIS [None]
  - BLOOD PRESSURE INCREASED [None]
  - NEOPLASM PROGRESSION [None]
  - ABDOMINAL PAIN UPPER [None]
  - SKIN FISSURES [None]
  - HYPERKERATOSIS [None]
  - PAIN IN EXTREMITY [None]
  - PENILE EXFOLIATION [None]
